FAERS Safety Report 24547616 (Version 1)
Quarter: 2024Q4

REPORT INFORMATION
  Report Type: Spontaneous
  Country: US (occurrence: US)
  Receive Date: 20241025
  Receipt Date: 20241025
  Transmission Date: 20250115
  Serious: No
  Sender: DR REDDYS
  Company Number: US-DRL-USA-LIT/USA/24/0015472

PATIENT
  Age: 64 Year
  Sex: Male

DRUGS (1)
  1. PRIMIDONE [Suspect]
     Active Substance: PRIMIDONE
     Indication: Essential tremor

REACTIONS (2)
  - Sleep disorder [Unknown]
  - Product use in unapproved indication [Unknown]
